FAERS Safety Report 10301947 (Version 5)
Quarter: 2020Q3

REPORT INFORMATION
  Report Type: Spontaneous
  Country: BE (occurrence: BE)
  Receive Date: 20140714
  Receipt Date: 20200915
  Transmission Date: 20201102
  Serious: Yes (Other)
  Sender: FDA-Public Use
  Company Number: PHHY2014BE043333

PATIENT
  Age: 44 Year
  Sex: Female

DRUGS (14)
  1. LORAZEPAM. [Suspect]
     Active Substance: LORAZEPAM
     Indication: OCCUPATIONAL EXPOSURE TO PRODUCT
     Dosage: UNK
     Route: 061
  2. BROMAZEPAM [Suspect]
     Active Substance: BROMAZEPAM
     Indication: PRODUCT USED FOR UNKNOWN INDICATION
     Dosage: UNK
     Route: 065
  3. ZOLPIDEM [Suspect]
     Active Substance: ZOLPIDEM TARTRATE
     Indication: OCCUPATIONAL EXPOSURE TO PRODUCT
     Dosage: UNK
     Route: 065
  4. BACLOFEN. [Suspect]
     Active Substance: BACLOFEN
     Indication: OCCUPATIONAL EXPOSURE TO PRODUCT
     Dosage: UNK
     Route: 061
  5. ESOMEPRAZOLE. [Suspect]
     Active Substance: ESOMEPRAZOLE MAGNESIUM
     Indication: OCCUPATIONAL EXPOSURE TO PRODUCT
     Dosage: UNK
     Route: 061
  6. ARIPIPRAZOLE. [Suspect]
     Active Substance: ARIPIPRAZOLE
     Indication: OCCUPATIONAL EXPOSURE TO PRODUCT
     Dosage: UNK, AIRBORNE
     Route: 061
  7. CAPTOPRIL. [Suspect]
     Active Substance: CAPTOPRIL
     Indication: OCCUPATIONAL EXPOSURE TO PRODUCT
     Dosage: UNK
     Route: 065
  8. TETRAZEPAM [Suspect]
     Active Substance: TETRAZEPAM
     Indication: OCCUPATIONAL EXPOSURE TO PRODUCT
     Dosage: UNK
     Route: 061
  9. TRAZODONE [Suspect]
     Active Substance: TRAZODONE HYDROCHLORIDE
     Indication: OCCUPATIONAL EXPOSURE TO PRODUCT
     Dosage: UNK
     Route: 065
  10. ALPRAZOLAM. [Suspect]
     Active Substance: ALPRAZOLAM
     Indication: PRODUCT USED FOR UNKNOWN INDICATION
     Dosage: UNK
     Route: 065
  11. ALDACTAZINE [Suspect]
     Active Substance: ALTHIAZIDE\SPIRONOLACTONE
     Indication: PRODUCT USED FOR UNKNOWN INDICATION
     Dosage: UNK
     Route: 065
  12. DIAZEPAM. [Suspect]
     Active Substance: DIAZEPAM
     Indication: OCCUPATIONAL EXPOSURE TO PRODUCT
     Dosage: UNK, ROUTE: AIRBORNE
     Route: 061
  13. OXYBUTYNIN. [Suspect]
     Active Substance: OXYBUTYNIN CHLORIDE
     Indication: OCCUPATIONAL EXPOSURE TO PRODUCT
     Dosage: UNK, AIRBORNE
     Route: 061
  14. PARACETAMOL [Suspect]
     Active Substance: ACETAMINOPHEN
     Indication: OCCUPATIONAL EXPOSURE TO PRODUCT
     Dosage: UNK, AIRBORNE
     Route: 061

REACTIONS (6)
  - Therapeutic product cross-reactivity [Unknown]
  - Dermatitis contact [Unknown]
  - Wrong technique in product usage process [Unknown]
  - Eczema [Unknown]
  - Occupational exposure to product [Unknown]
  - Occupational dermatitis [Unknown]
